FAERS Safety Report 11589416 (Version 2)
Quarter: 2015Q4

REPORT INFORMATION
  Report Type: Spontaneous
  Country: US (occurrence: US)
  Receive Date: 20151002
  Receipt Date: 20151002
  Transmission Date: 20160304
  Serious: Yes (Hospitalization, Other)
  Sender: FDA-Public Use
  Company Number: US-B.I. PHARMACEUTICALS,INC./RIDGEFIELD-2015-BI-53002GD

PATIENT
  Age: 17 Year
  Sex: Female

DRUGS (2)
  1. CATAPRESAN [Suspect]
     Active Substance: CLONIDINE
     Indication: PRODUCT USED FOR UNKNOWN INDICATION
     Dosage: 2.4 MG
     Route: 048
  2. BUPROPION. [Suspect]
     Active Substance: BUPROPION
     Indication: PRODUCT USED FOR UNKNOWN INDICATION
     Dosage: 1500 MG
     Route: 048

REACTIONS (12)
  - Generalised tonic-clonic seizure [Recovered/Resolved]
  - Nausea [Recovered/Resolved]
  - Somnolence [Recovered/Resolved]
  - Mydriasis [Recovered/Resolved]
  - Hypertension [Recovered/Resolved]
  - Overdose [Recovered/Resolved]
  - Anxiety [Recovered/Resolved]
  - Tremor [Recovered/Resolved]
  - Suicide attempt [Recovered/Resolved]
  - Miosis [Recovered/Resolved]
  - Bradycardia [Recovered/Resolved]
  - Tachycardia [Recovered/Resolved]
